FAERS Safety Report 17459768 (Version 1)
Quarter: 2020Q1

REPORT INFORMATION
  Report Type: Spontaneous
  Country: US (occurrence: US)
  Receive Date: 20200225
  Receipt Date: 20200225
  Transmission Date: 20200409
  Serious: No
  Sender: FDA-Public Use
  Company Number: US-009507513-2002USA007678

PATIENT
  Age: 33 Year
  Sex: Female

DRUGS (2)
  1. NOXAFIL [Suspect]
     Active Substance: POSACONAZOLE
     Indication: MUCORMYCOSIS
  2. CUBICIN [Suspect]
     Active Substance: DAPTOMYCIN
     Indication: MUCORMYCOSIS

REACTIONS (1)
  - Product use in unapproved indication [Unknown]
